FAERS Safety Report 13663567 (Version 1)
Quarter: 2017Q2

REPORT INFORMATION
  Report Type: Spontaneous
  Country: US (occurrence: US)
  Receive Date: 20170616
  Receipt Date: 20170616
  Transmission Date: 20170830
  Serious: Yes (Other)
  Sender: FDA-Public Use
  Company Number: None

PATIENT
  Age: 75 Year
  Sex: Female

DRUGS (1)
  1. IBRANCE [Suspect]
     Active Substance: PALBOCICLIB
     Indication: BREAST CANCER
     Dosage: 125MG EVERY DAY FOR 21 DAYS ON, THEN 7 DAYS OFF BY MOUTH
     Route: 048
     Dates: start: 20160621

REACTIONS (5)
  - Diarrhoea [None]
  - Urinary tract infection [None]
  - Odynophagia [None]
  - Dyspnoea [None]
  - Chest pain [None]

NARRATIVE: CASE EVENT DATE: 20170611
